FAERS Safety Report 5872117-6 (Version None)
Quarter: 2008Q3

REPORT INFORMATION
  Report Type: 
  Country: None (occurrence: None)
  Receive Date: 20080905
  Receipt Date: 20080829
  Transmission Date: 20090109
  Serious: Yes (Other)
  Sender: FDA-Public Use
  Company Number: B0535687A

PATIENT
  Sex: Female

DRUGS (3)
  1. SERETIDE ACCUHALER [Suspect]
     Indication: ASTHMA
     Dosage: 1PUFF PER DAY
     Route: 055
  2. VENTOLIN [Concomitant]
  3. RENITEC [Concomitant]

REACTIONS (4)
  - ASTHMA [None]
  - COUGH [None]
  - DRY MOUTH [None]
  - LIP PAIN [None]
